FAERS Safety Report 16786569 (Version 1)
Quarter: 2019Q3

REPORT INFORMATION
  Report Type: Spontaneous
  Country: US (occurrence: US)
  Receive Date: 20190909
  Receipt Date: 20190909
  Transmission Date: 20191005
  Serious: No
  Sender: FDA-Public Use
  Company Number: US-BAUSCH-BL-2019-023820

PATIENT
  Sex: Male

DRUGS (2)
  1. ELIDEL [Suspect]
     Active Substance: PIMECROLIMUS
     Indication: PRODUCT USED FOR UNKNOWN INDICATION
     Route: 065
  2. EUCRISA [Suspect]
     Active Substance: CRISABOROLE
     Indication: SKIN IRRITATION
     Route: 061

REACTIONS (2)
  - Pain of skin [Unknown]
  - Skin burning sensation [Unknown]
